FAERS Safety Report 7410125-4 (Version None)
Quarter: 2011Q2

REPORT INFORMATION
  Report Type: 
  Country: None (occurrence: None)
  Receive Date: 20110412
  Receipt Date: 20110408
  Transmission Date: 20111010
  Serious: Yes (Hospitalization)
  Sender: FDA-Public Use
  Company Number: AU-PFIZER INC-2011064869

PATIENT
  Age: 40 Year
  Sex: Male

DRUGS (4)
  1. ASMOL [Concomitant]
     Indication: ASTHMA
     Dosage: 2 PUFFS 4 TIMES A DAY
     Route: 055
  2. CODALGIN FORTE [Concomitant]
     Indication: PAIN
     Dosage: 1-2 TABLETS, 4X/DAY
     Route: 048
  3. ENDONE [Concomitant]
     Indication: PAIN
     Dosage: 5 MG, 4X/DAY
     Route: 048
  4. LYRICA [Suspect]
     Indication: PAIN
     Dosage: 75 MG, 2X/DAY
     Route: 048
     Dates: start: 20110222, end: 20110222

REACTIONS (2)
  - DYSPNOEA [None]
  - JOINT SWELLING [None]
